FAERS Safety Report 8832102 (Version 1)
Quarter: 2012Q4

REPORT INFORMATION
  Report Type: 
  Country: FR (occurrence: FR)
  Receive Date: 20121009
  Receipt Date: 20121009
  Transmission Date: 20130627
  Serious: Yes (Hospitalization)
  Sender: FDA-Public Use
  Company Number: FR-JNJFOC-20121004438

PATIENT
  Age: 72 Year
  Sex: Male

DRUGS (4)
  1. CETIRIZINE [Suspect]
     Route: 048
  2. CETIRIZINE [Suspect]
     Indication: PRURITUS
     Route: 048
     Dates: start: 20120731, end: 20120801
  3. LASILIX [Concomitant]
     Indication: LIVER DISORDER
     Route: 065
     Dates: start: 201207, end: 20120801
  4. DUPHALAC [Concomitant]
     Indication: HEPATIC ENCEPHALOPATHY
     Route: 065
     Dates: start: 201207, end: 20120801

REACTIONS (2)
  - Hypersensitivity [Recovering/Resolving]
  - Drug administered to patient of inappropriate age [Unknown]
